FAERS Safety Report 7503563-2 (Version None)
Quarter: 2011Q2

REPORT INFORMATION
  Report Type: 
  Country: None (occurrence: None)
  Receive Date: 20110525
  Receipt Date: 20110512
  Transmission Date: 20111010
  Serious: Yes (Other)
  Sender: FDA-Public Use
  Company Number: AU-ROCHE-778495

PATIENT
  Sex: Male

DRUGS (3)
  1. CHLORSIG [Concomitant]
     Dosage: UNK
  2. AVASTIN [Suspect]
     Indication: MACULAR DEGENERATION
     Route: 065
  3. LUCENTIS [Suspect]
     Indication: MACULAR DEGENERATION
     Dosage: UNK LAST DOSE PRIOR TO SAE: 31 MAR 2011
     Route: 031
     Dates: start: 20100527

REACTIONS (1)
  - ENDOPHTHALMITIS [None]
